FAERS Safety Report 5222428-2 (Version None)
Quarter: 2007Q1

REPORT INFORMATION
  Report Type: 
  Country: None (occurrence: None)
  Receive Date: 20070124
  Receipt Date: 20070117
  Transmission Date: 20070707
  Serious: Yes (Hospitalization)
  Sender: FDA-Public Use
  Company Number: 163-21880-06100763

PATIENT
  Age: 48 Year
  Sex: Female

DRUGS (11)
  1. REVLIMID [Suspect]
     Indication: LYMPHOMA
     Dosage: 25 MG, DAILY, ORAL
     Route: 048
     Dates: start: 20060901, end: 20061003
  2. LIPITOR [Concomitant]
  3. OMEGA 3 (FISH OIL) [Concomitant]
  4. LASIX [Concomitant]
  5. FLORINEF ACETATE (FLUDROCORTISONE ACETAE) [Concomitant]
  6. MULTI-VITAMIN (VITAMINS WITH MINERALS) [Concomitant]
  7. K-TAB [Concomitant]
  8. HYDROCORT (HYDROCORTISONE ACETATE) [Concomitant]
  9. ISORDIL TITRADOSE (ISOSORBIDE DINITRATE) [Concomitant]
  10. NITROQUICK (GLYCERYL TRINITRATE) [Concomitant]
  11. VITAMIN D [Concomitant]

REACTIONS (9)
  - ABDOMINAL PAIN [None]
  - ADRENAL INSUFFICIENCY [None]
  - CONSTIPATION [None]
  - DIARRHOEA [None]
  - DIZZINESS [None]
  - HYPERTENSION [None]
  - PITTING OEDEMA [None]
  - RENAL FAILURE CHRONIC [None]
  - WEIGHT INCREASED [None]
